FAERS Safety Report 13546678 (Version 2)
Quarter: 2017Q3

REPORT INFORMATION
  Report Type: Spontaneous
  Country: DE (occurrence: DE)
  Receive Date: 20170515
  Receipt Date: 20170705
  Transmission Date: 20171127
  Serious: Yes (Hospitalization)
  Sender: FDA-Public Use
  Company Number: DE-TEVA-766266GER

PATIENT
  Age: 2 Year
  Sex: Female

DRUGS (1)
  1. AMOXICILLIN-RATIOPHARM 500 MG/5 ML TS [Suspect]
     Active Substance: AMOXICILLIN
     Indication: BRONCHITIS BACTERIAL
     Dosage: 5 ML (1 MEASURING SPOON) OF READY TO USE SOLUTION CONTAINS 500 MG AMOXICILLIN
     Route: 048
     Dates: start: 201705

REACTIONS (2)
  - Overdose [Unknown]
  - Abdominal pain [Unknown]

NARRATIVE: CASE EVENT DATE: 20170503
